FAERS Safety Report 9135655 (Version 1)
Quarter: 2013Q1

REPORT INFORMATION
  Report Type: Spontaneous
  Country: CH (occurrence: CH)
  Receive Date: 20130304
  Receipt Date: 20130304
  Transmission Date: 20140127
  Serious: Yes (Other)
  Sender: FDA-Public Use
  Company Number: CH-MYLANLABS-2013S1004115

PATIENT
  Age: 46 Year
  Sex: Female

DRUGS (5)
  1. DARUNAVIR [Suspect]
     Indication: HIV INFECTION
     Route: 065
     Dates: start: 20120425
  2. RITONAVIR [Interacting]
     Indication: HIV INFECTION
     Route: 065
     Dates: start: 20120425
  3. ESOMEPRAZOLE [Interacting]
     Indication: GASTROOESOPHAGEAL REFLUX DISEASE
     Dosage: 40MG DAILY
     Route: 065
  4. ESCITALOPRAM [Interacting]
     Indication: DEPRESSION
     Route: 065
  5. TRUVADA [Concomitant]
     Indication: HIV INFECTION
     Dosage: EMTRICITABINE 200/TENOFOVIR DISOPROXIL FUMARATE 245MG DAILY
     Route: 065

REACTIONS (2)
  - Serotonin syndrome [Recovered/Resolved]
  - Drug interaction [Recovered/Resolved]
